FAERS Safety Report 8049446-3 (Version None)
Quarter: 2012Q1

REPORT INFORMATION
  Report Type: 
  Country: None (occurrence: None)
  Receive Date: 20120111
  Receipt Date: 20111229
  Transmission Date: 20120608
  Serious: Yes (Other)
  Sender: FDA-Public Use
  Company Number: JPI-P-019064

PATIENT
  Age: 34 Year
  Sex: Male

DRUGS (2)
  1. XYREM [Suspect]
     Indication: MYOCLONUS
     Dosage: 6 GM (2 GM,3 IN 1 D), ORAL , 2.5 GM THREE TIMES/1.5 GM TWICE), ORAL
     Route: 048
     Dates: start: 20080602
  2. XYREM [Suspect]
     Indication: MYOCLONUS
     Dosage: 6 GM (2 GM,3 IN 1 D), ORAL , 2.5 GM THREE TIMES/1.5 GM TWICE), ORAL
     Route: 048
     Dates: start: 20070212

REACTIONS (3)
  - FRACTURE [None]
  - LIGAMENT RUPTURE [None]
  - FALL [None]
